FAERS Safety Report 7321713-8 (Version None)
Quarter: 2011Q1

REPORT INFORMATION
  Report Type: 
  Country: None (occurrence: None)
  Receive Date: 20110228
  Receipt Date: 20100723
  Transmission Date: 20110831
  Serious: Yes (Other)
  Sender: FDA-Public Use
  Company Number: US-PFIZER INC-2010073770

PATIENT
  Age: 28 Year
  Sex: Male
  Weight: 68.027 kg

DRUGS (2)
  1. LAMICTAL [Concomitant]
     Dosage: UNK
  2. GEODON [Suspect]
     Indication: BIPOLAR DISORDER
     Dosage: 20 MG MORNING AND 60MG NIGHT
     Route: 048
     Dates: start: 20100401, end: 20100422

REACTIONS (1)
  - HYPERGLYCAEMIA [None]
